FAERS Safety Report 7958348-X (Version None)
Quarter: 2011Q4

REPORT INFORMATION
  Report Type: 
  Country: None (occurrence: None)
  Receive Date: 20111205
  Receipt Date: 20111201
  Transmission Date: 20120403
  Serious: Yes (Other)
  Sender: FDA-Public Use
  Company Number: BE-ROCHE-1015839

PATIENT
  Sex: Female

DRUGS (19)
  1. AVASTIN [Suspect]
     Dates: start: 20101220
  2. FLUOROURACIL [Concomitant]
     Dates: start: 20110214, end: 20110426
  3. ERBITUX [Concomitant]
     Indication: RECTAL CANCER METASTATIC
     Dates: start: 20111024
  4. AVASTIN [Suspect]
     Indication: RECTAL CANCER METASTATIC
     Route: 065
     Dates: start: 20100705, end: 20110228
  5. AVASTIN [Suspect]
     Dates: start: 20110426, end: 20110509
  6. FLUOROURACIL [Concomitant]
     Dates: start: 20100705, end: 20101220
  7. IRINOTECAN HCL [Concomitant]
     Dates: start: 20110606
  8. AVASTIN [Suspect]
     Dates: start: 20110704
  9. LEUCOVORIN CALCIUM [Concomitant]
     Dates: start: 20110214, end: 20110426
  10. FLUOROURACIL [Concomitant]
     Dates: start: 20110606
  11. IRINOTECAN HCL [Concomitant]
     Dates: start: 20100705, end: 20101220
  12. AVASTIN [Suspect]
     Dates: start: 20110214, end: 20110228
  13. LEUCOVORIN CALCIUM [Concomitant]
     Dates: start: 20110606
  14. IRINOTECAN HCL [Concomitant]
     Dates: start: 20110214, end: 20110426
  15. LEUCOVORIN CALCIUM [Concomitant]
     Dates: start: 20100705, end: 20101220
  16. FLUOROURACIL [Concomitant]
     Dates: start: 20110426, end: 20110606
  17. FLUOROURACIL [Concomitant]
     Dates: start: 20110704
  18. OXALIPLATIN [Concomitant]
     Dates: start: 20110426, end: 20110606
  19. OXALIPLATIN [Concomitant]
     Dates: start: 20110704

REACTIONS (13)
  - VOMITING [None]
  - ALOPECIA [None]
  - DYSPEPSIA [None]
  - WEIGHT DECREASED [None]
  - VENOUS THROMBOSIS [None]
  - ERUCTATION [None]
  - NAUSEA [None]
  - PERIODONTITIS [None]
  - TOOTH EXTRACTION [None]
  - ANAL FISSURE [None]
  - DECREASED APPETITE [None]
  - PAIN IN EXTREMITY [None]
  - BACK PAIN [None]
